FAERS Safety Report 4582506-8 (Version None)
Quarter: 2005Q1

REPORT INFORMATION
  Report Type: 
  Country: None (occurrence: None)
  Receive Date: 20050127
  Receipt Date: 20040927
  Transmission Date: 20050727
  Serious: No
  Sender: FDA-Public Use
  Company Number: USA040979116

PATIENT
  Age: 48 Year
  Sex: Female
  Weight: 64 kg

DRUGS (3)
  1. STRATTERA [Suspect]
     Indication: ATTENTION DEFICIT/HYPERACTIVITY DISORDER
     Dosage: 40 MG
     Dates: start: 20040921
  2. ESTRADIOL [Concomitant]
  3. LEVOXYL [Concomitant]

REACTIONS (4)
  - DIZZINESS [None]
  - FEELING ABNORMAL [None]
  - SOMNOLENCE [None]
  - STOMACH DISCOMFORT [None]
